FAERS Safety Report 22924395 (Version 2)
Quarter: 2023Q4

REPORT INFORMATION
  Report Type: Spontaneous
  Country: US (occurrence: US)
  Receive Date: 20230908
  Receipt Date: 20231017
  Transmission Date: 20240110
  Serious: No
  Sender: FDA-Public Use
  Company Number: US-SA-SAC20230907000703

PATIENT
  Age: 34 Year
  Sex: Male

DRUGS (4)
  1. AMBIEN [Suspect]
     Active Substance: ZOLPIDEM TARTRATE
     Dosage: 18 MG, QD
  2. LENVIMA [Concomitant]
     Active Substance: LENVATINIB
     Indication: Renal cancer
     Dosage: 18MG, QD
     Route: 048
     Dates: start: 20220607
  3. EVEROLIMUS [Concomitant]
     Active Substance: EVEROLIMUS
     Indication: Renal cancer
     Dosage: 5MG, QD
     Dates: start: 20220607
  4. IBUPROFEN [Concomitant]
     Active Substance: IBUPROFEN
     Indication: Pain
     Dosage: UNK

REACTIONS (2)
  - Insomnia [Not Recovered/Not Resolved]
  - Drug ineffective [Unknown]

NARRATIVE: CASE EVENT DATE: 20230320
